FAERS Safety Report 10366370 (Version 1)
Quarter: 2014Q3

REPORT INFORMATION
  Report Type: Spontaneous
  Country: US (occurrence: US)
  Receive Date: 20140806
  Receipt Date: 20140806
  Transmission Date: 20150326
  Serious: Yes (Death)
  Sender: FDA-Public Use
  Company Number: US-BAYER-2014-110777

PATIENT
  Age: 85 Year
  Sex: Female
  Weight: 54.42 kg

DRUGS (1)
  1. CAMPHO-PHENIQUE ANTISEPTIC LIQUID [Suspect]
     Active Substance: CAMPHORATED PHENOL
     Indication: HERPES ZOSTER
     Dosage: 1 DOSE, PRN
     Route: 061
     Dates: end: 2013

REACTIONS (2)
  - Intentional product misuse [None]
  - Staphylococcal infection [Fatal]

NARRATIVE: CASE EVENT DATE: 2013
